FAERS Safety Report 9377120 (Version 1)
Quarter: 2013Q3

REPORT INFORMATION
  Report Type: Spontaneous
  Country: US (occurrence: None)
  Receive Date: 20130628
  Receipt Date: 20130628
  Transmission Date: 20140515
  Serious: Yes (Hospitalization)
  Sender: FDA-Public Use
  Company Number: None

PATIENT
  Age: 46 Year
  Sex: Female

DRUGS (10)
  1. CABOZANTINIB [Suspect]
     Indication: BREAST CANCER
     Route: 048
     Dates: start: 20121019, end: 20121231
  2. COMPAZINE [Concomitant]
  3. NEUPOGEN [Concomitant]
  4. PREDNISONE [Concomitant]
  5. RITALIN [Concomitant]
  6. ZOLOFT [Concomitant]
  7. ATIVAN [Concomitant]
  8. ZOFRAN [Concomitant]
  9. IMMODIUM [Concomitant]
  10. POTASSIUM [Concomitant]

REACTIONS (7)
  - Dehydration [None]
  - Hypotension [None]
  - Pneumonia [None]
  - Diarrhoea [None]
  - Decreased appetite [None]
  - Hyponatraemia [None]
  - Hypokalaemia [None]
